FAERS Safety Report 14593108 (Version 1)
Quarter: 2018Q1

REPORT INFORMATION
  Report Type: Spontaneous
  Country: US (occurrence: US)
  Receive Date: 20180302
  Receipt Date: 20180302
  Transmission Date: 20180509
  Serious: Yes (Death, Other)
  Sender: FDA-Public Use
  Company Number: US-SAOL THERAPEUTICS-2018SAO00161

PATIENT
  Sex: Male
  Weight: 24.7 kg

DRUGS (9)
  1. BACLOFEN. [Suspect]
     Active Substance: BACLOFEN
     Dosage: 769.7 ?G, \DAY
     Route: 037
     Dates: start: 20110315, end: 20110607
  2. NEXIUM [Concomitant]
     Active Substance: ESOMEPRAZOLE MAGNESIUM
     Dosage: 10 MG, 1X/DAY
  3. BACLOFEN. [Suspect]
     Active Substance: BACLOFEN
     Dosage: 769.7 ?G, \DAY
     Route: 037
     Dates: start: 20140722
  4. FLUTICASONE. [Concomitant]
     Active Substance: FLUTICASONE
     Dosage: UNK, 1X/DAY
  5. PERIDEX [Concomitant]
     Active Substance: CHLORHEXIDINE GLUCONATE
     Dosage: UNK, 1X/DAY
  6. CETIRIZINE [Concomitant]
     Active Substance: CETIRIZINE HYDROCHLORIDE
     Dosage: 5 MG, 1X/DAY
  7. KEPPRA [Concomitant]
     Active Substance: LEVETIRACETAM
     Dosage: 1000 MG, 2X/DAY
  8. MILK OF MAGNESIA [Concomitant]
     Active Substance: MAGNESIUM HYDROXIDE
     Dosage: 5 ML, 1X/DAY
  9. MULTIVITAMIN [Concomitant]
     Active Substance: VITAMINS
     Dosage: UNK, 1X/DAY

REACTIONS (4)
  - Implant site infection [Unknown]
  - Cyanosis [None]
  - Respiratory disorder [Fatal]
  - Breath holding [None]
